FAERS Safety Report 6041599-1 (Version None)
Quarter: 2009Q1

REPORT INFORMATION
  Report Type: 
  Country: None (occurrence: None)
  Receive Date: 20090116
  Receipt Date: 20090108
  Transmission Date: 20090719
  Serious: Yes (Hospitalization, Other)
  Sender: FDA-Public Use
  Company Number: B0548287A

PATIENT
  Age: 51 Year
  Sex: Male

DRUGS (3)
  1. HEPSERA [Suspect]
     Dosage: 10MG PER DAY
  2. LAMIVUDINE [Suspect]
     Dosage: 300MG PER DAY
  3. TENOFOVIR [Suspect]
     Dosage: 300MG PER DAY

REACTIONS (5)
  - ALANINE AMINOTRANSFERASE INCREASED [None]
  - DRUG INEFFECTIVE [None]
  - GENOTYPE DRUG RESISTANCE TEST POSITIVE [None]
  - HEPATIC FAILURE [None]
  - HEPATIC NEOPLASM MALIGNANT [None]
